FAERS Safety Report 13404981 (Version 1)
Quarter: 2017Q2

REPORT INFORMATION
  Report Type: Report from Study
  Country: None (occurrence: BR)
  Receive Date: 20170405
  Receipt Date: 20170405
  Transmission Date: 20170830
  Serious: Yes (Other)
  Sender: FDA-Public Use
  Company Number: BR-ABBVIE-17K-020-1928535-00

PATIENT
  Sex: Female
  Weight: 62 kg

DRUGS (6)
  1. HUMIRA [Suspect]
     Active Substance: ADALIMUMAB
     Indication: ANKYLOSING SPONDYLITIS
     Route: 058
     Dates: start: 20120101
  2. RIVOTRIL [Concomitant]
     Active Substance: CLONAZEPAM
     Indication: DEPRESSION
     Route: 048
     Dates: start: 1998
  3. AMITRIPTYLINE [Concomitant]
     Active Substance: AMITRIPTYLINE
     Indication: ANXIETY
     Route: 048
     Dates: start: 2003
  4. AMITRIPTYLINE [Concomitant]
     Active Substance: AMITRIPTYLINE
     Indication: SPONDYLITIS
  5. AMITRIPTYLINE [Concomitant]
     Active Substance: AMITRIPTYLINE
     Indication: DEPRESSION
  6. SENNA/ ASSOCIATIONS (ALMEIDA PRADO) [Concomitant]
     Indication: GASTROINTESTINAL DISORDER
     Route: 048

REACTIONS (15)
  - Head injury [Not Recovered/Not Resolved]
  - Gait disturbance [Recovering/Resolving]
  - Hypoaesthesia [Recovering/Resolving]
  - Wound complication [Recovered/Resolved]
  - Loss of personal independence in daily activities [Not Recovered/Not Resolved]
  - Wound complication [Not Recovered/Not Resolved]
  - Skeletal injury [Not Recovered/Not Resolved]
  - Fall [Not Recovered/Not Resolved]
  - Aphthous ulcer [Recovered/Resolved]
  - Amnesia [Not Recovered/Not Resolved]
  - Paraesthesia [Recovering/Resolving]
  - Wound infection fungal [Not Recovered/Not Resolved]
  - Helicobacter gastritis [Unknown]
  - Balance disorder [Not Recovered/Not Resolved]
  - Limb injury [Not Recovered/Not Resolved]

NARRATIVE: CASE EVENT DATE: 2015
